FAERS Safety Report 4958955-2 (Version None)
Quarter: 2006Q1

REPORT INFORMATION
  Report Type: 
  Country: None (occurrence: None)
  Receive Date: 20060328
  Receipt Date: 20060317
  Transmission Date: 20060701
  Serious: Yes (Hospitalization)
  Sender: FDA-Public Use
  Company Number: 2006-03-1164

PATIENT
  Age: 60 Year
  Sex: Male
  Weight: 113 kg

DRUGS (12)
  1. TEMODAR [Suspect]
     Indication: GLIOBLASTOMA MULTIFORME
     Dosage: 480 MG QD X5D ORAL
     Route: 048
     Dates: start: 20060307, end: 20060311
  2. GLEEVEC [Suspect]
     Indication: GLIOBLASTOMA MULTIFORME
     Dosage: 600 MG BID X8D ORAL
     Route: 048
     Dates: start: 20060304, end: 20060311
  3. DILANTIN [Concomitant]
  4. DECADRON [Concomitant]
  5. LISINOPRIL [Concomitant]
  6. METFORMIN [Concomitant]
  7. PEPCID [Concomitant]
  8. PROZAC [Concomitant]
  9. CELLCEPT [Concomitant]
  10. COENZYME Q10 [Concomitant]
  11. CELL FORTE (IP-6TM/INOSITOL) [Concomitant]
  12. FISH OIL [Concomitant]

REACTIONS (5)
  - ALANINE AMINOTRANSFERASE INCREASED [None]
  - ASPARTATE AMINOTRANSFERASE INCREASED [None]
  - HYPERBILIRUBINAEMIA [None]
  - NEPHRITIS INTERSTITIAL [None]
  - ORAL INTAKE REDUCED [None]
